FAERS Safety Report 15293565 (Version 1)
Quarter: 2018Q3

REPORT INFORMATION
  Report Type: Spontaneous
  Country: US (occurrence: US)
  Receive Date: 20180820
  Receipt Date: 20180820
  Transmission Date: 20181010
  Serious: No
  Sender: FDA-Public Use
  Company Number: US-TEVA-809256ACC

PATIENT
  Age: 70 Year
  Sex: Female
  Weight: 102.6 kg

DRUGS (1)
  1. VENLAFAXINE [Suspect]
     Active Substance: VENLAFAXINE HYDROCHLORIDE
     Indication: NERVOUS SYSTEM DISORDER
     Dosage: 150 MILLIGRAM DAILY; 150MG CAPSULE BY MOUTH ONCE DAILY IN THE EVENING, TAKEN TWO DOSES SO FAR
     Dates: start: 20170807

REACTIONS (2)
  - Dizziness [Not Recovered/Not Resolved]
  - Tremor [Not Recovered/Not Resolved]

NARRATIVE: CASE EVENT DATE: 20170808
